FAERS Safety Report 8076785-2 (Version None)
Quarter: 2012Q1

REPORT INFORMATION
  Report Type: 
  Country: None (occurrence: None)
  Receive Date: 20120127
  Receipt Date: 20120119
  Transmission Date: 20120608
  Serious: Yes (Other)
  Sender: FDA-Public Use
  Company Number: FR-JNJFOC-20111008724

PATIENT
  Sex: Female

DRUGS (10)
  1. RISPERDAL [Concomitant]
     Route: 048
     Dates: start: 20110101
  2. HALDOL [Concomitant]
     Route: 065
  3. ZOLPIDEM [Concomitant]
     Indication: INSOMNIA
     Route: 065
  4. ZYPREXA [Concomitant]
     Route: 065
  5. TEGRETOL [Concomitant]
     Indication: PRODUCT USED FOR UNKNOWN INDICATION
     Route: 065
  6. RISPERDAL CONSTA [Suspect]
     Indication: PRODUCT USED FOR UNKNOWN INDICATION
     Route: 030
  7. RISPERDAL [Concomitant]
     Route: 048
  8. TRANXENE [Concomitant]
     Route: 065
  9. RISPERDAL [Concomitant]
     Indication: PRODUCT USED FOR UNKNOWN INDICATION
     Route: 048
  10. TOP MAG [Concomitant]
     Route: 065

REACTIONS (4)
  - ROAD TRAFFIC ACCIDENT [None]
  - FEELING ABNORMAL [None]
  - INCOHERENT [None]
  - DRUG INEFFECTIVE [None]
